FAERS Safety Report 22304324 (Version 7)
Quarter: 2023Q2

REPORT INFORMATION
  Report Type: Spontaneous
  Country: US (occurrence: US)
  Receive Date: 20230510
  Receipt Date: 20230629
  Transmission Date: 20230722
  Serious: No
  Sender: FDA-Public Use
  Company Number: US-PFIZER INC-202300181250

PATIENT
  Age: 14 Year
  Sex: Male

DRUGS (2)
  1. GENOTROPIN [Suspect]
     Active Substance: SOMATROPIN
     Dosage: 2.4 MG (ALTERNATING WITH 1.6 MG)
  2. GENOTROPIN [Suspect]
     Active Substance: SOMATROPIN
     Dosage: 1.6 MG (ALTERNATING WITH 2.4 MG)

REACTIONS (6)
  - Incorrect dose administered by device [Unknown]
  - Device mechanical issue [Unknown]
  - Device physical property issue [Unknown]
  - Device leakage [Unknown]
  - Device use error [Unknown]
  - Injection site pain [Unknown]
